FAERS Safety Report 7114619-0 (Version None)
Quarter: 2010Q4

REPORT INFORMATION
  Report Type: 
  Country: None (occurrence: None)
  Receive Date: 20101121
  Receipt Date: 20101108
  Transmission Date: 20110411
  Serious: Yes (Other)
  Sender: FDA-Public Use
  Company Number: US-ELI_LILLY_AND_COMPANY-US201007004920

PATIENT
  Age: 50 Year
  Sex: Male

DRUGS (1)
  1. SYMBYAX [Suspect]
     Indication: DEPRESSION
     Dosage: 1 D/F, DAILY (1/D)
     Dates: start: 20100425, end: 20100524

REACTIONS (1)
  - TINNITUS [None]
